FAERS Safety Report 26061758 (Version 2)
Quarter: 2025Q4

REPORT INFORMATION
  Report Type: Report from Study
  Country: EU (occurrence: EU)
  Receive Date: 20251118
  Receipt Date: 20251125
  Transmission Date: 20260118
  Serious: Yes (Death, Hospitalization, Disabling, Other)
  Sender: ABBVIE
  Company Number: EU-ABBVIE-6553407

PATIENT
  Age: 80 Year
  Sex: Female

DRUGS (1)
  1. GLECAPREVIR\PIBRENTASVIR [Suspect]
     Active Substance: GLECAPREVIR\PIBRENTASVIR
     Indication: Hepatic cirrhosis
     Dosage: 300 MG/ 120 MG
     Route: 048
     Dates: start: 20250705, end: 202508

REACTIONS (50)
  - Cardio-respiratory arrest [Fatal]
  - Cardiac arrest [Fatal]
  - Confusional state [Unknown]
  - Glioblastoma [Unknown]
  - Tricuspid valve incompetence [Unknown]
  - Livedo reticularis [Unknown]
  - Bradycardia [Not Recovered/Not Resolved]
  - Blood thyroid stimulating hormone decreased [Unknown]
  - Memory impairment [Unknown]
  - Respiratory disorder [Not Recovered/Not Resolved]
  - International normalised ratio increased [Unknown]
  - Hypopituitarism [Unknown]
  - Heart failure with preserved ejection fraction [Unknown]
  - Respiratory alkalosis [Unknown]
  - Bundle branch block right [Unknown]
  - Aphasia [Unknown]
  - Hepatic hypertrophy [Unknown]
  - Blood lactate dehydrogenase increased [Unknown]
  - Thrombocytopenia [Unknown]
  - Hepatic cirrhosis [Unknown]
  - Cholestasis [Unknown]
  - Platelet count decreased [Unknown]
  - Fatigue [Unknown]
  - Iron deficiency [Unknown]
  - Encephalopathy [Unknown]
  - Pulmonary sepsis [Unknown]
  - Bundle branch block left [Unknown]
  - Goitre [Unknown]
  - Hiatus hernia [Unknown]
  - Coma [Not Recovered/Not Resolved]
  - Vasogenic cerebral oedema [Unknown]
  - Chronic coronary syndrome [Unknown]
  - Asthenia [Not Recovered/Not Resolved]
  - Spinal osteoarthritis [Unknown]
  - Portal hypertensive gastropathy [Unknown]
  - Hypokalaemia [Unknown]
  - Pneumonia [Not Recovered/Not Resolved]
  - Varices oesophageal [Unknown]
  - Hypernatraemia [Unknown]
  - Haematemesis [Unknown]
  - Renal cyst [Unknown]
  - Mitral valve incompetence [Unknown]
  - Coagulopathy [Unknown]
  - White blood cell count increased [Unknown]
  - Acute respiratory failure [Unknown]
  - Paraneoplastic encephalomyelitis [Unknown]
  - Hypoxic-ischaemic encephalopathy [Unknown]
  - Dyspnoea exertional [Unknown]
  - Intracranial pressure increased [Unknown]
  - N-terminal prohormone brain natriuretic peptide increased [Unknown]

NARRATIVE: CASE EVENT DATE: 20250101
